FAERS Safety Report 18592260 (Version 1)
Quarter: 2020Q4

REPORT INFORMATION
  Report Type: Spontaneous
  Country: GB (occurrence: GB)
  Receive Date: 20201208
  Receipt Date: 20201208
  Transmission Date: 20210114
  Serious: Yes (Other)
  Sender: FDA-Public Use
  Company Number: GB-ASCEND THERAPEUTICS US, LLC-2101759

PATIENT
  Age: 52 Year
  Sex: Female

DRUGS (3)
  1. ESTROGEL [Suspect]
     Active Substance: ESTRADIOL
     Indication: MENOPAUSAL SYMPTOMS
     Route: 065
     Dates: start: 20200404
  2. OESTRODOSE (ESTRADIOL), UNKNOWN [Suspect]
     Active Substance: ESTRADIOL
     Route: 065
     Dates: start: 20200404
  3. ESTROGEL [Suspect]
     Active Substance: ESTRADIOL

REACTIONS (5)
  - Depressed mood [Unknown]
  - Product substitution issue [Unknown]
  - Night sweats [Unknown]
  - Insomnia [Unknown]
  - Anxiety [Unknown]

NARRATIVE: CASE EVENT DATE: 20200504
